FAERS Safety Report 17991127 (Version 6)
Quarter: 2021Q2

REPORT INFORMATION
  Report Type: Spontaneous
  Country: US (occurrence: US)
  Receive Date: 20200707
  Receipt Date: 20210527
  Transmission Date: 20210717
  Serious: Yes (Death, Hospitalization)
  Sender: FDA-Public Use
  Company Number: US-SEATTLE GENETICS-2020SGN02789

PATIENT
  Sex: Female

DRUGS (4)
  1. TUKYSA [Suspect]
     Active Substance: TUCATINIB
     Dosage: UNK
  2. CAPECITABINE. [Suspect]
     Active Substance: CAPECITABINE
     Indication: BREAST CANCER FEMALE
  3. TUKYSA [Suspect]
     Active Substance: TUCATINIB
     Indication: BREAST CANCER FEMALE
     Dosage: UNK, BID
     Route: 048
  4. BENADRYL [Suspect]
     Active Substance: DIPHENHYDRAMINE HYDROCHLORIDE
     Indication: RASH

REACTIONS (13)
  - Emotional disorder [Unknown]
  - Food aversion [Unknown]
  - Ingrowing nail [Unknown]
  - Nausea [Unknown]
  - Hernia repair [Recovering/Resolving]
  - White blood cell count decreased [Unknown]
  - Dehydration [Unknown]
  - Diarrhoea [Unknown]
  - Erythema [Unknown]
  - Skin exfoliation [Unknown]
  - Death [Fatal]
  - Product dose omission issue [Unknown]
  - Fatigue [Unknown]
